FAERS Safety Report 5224910-0 (Version None)
Quarter: 2007Q1

REPORT INFORMATION
  Report Type: 
  Country: None (occurrence: None)
  Receive Date: 20070126
  Receipt Date: 20070111
  Transmission Date: 20070707
  Serious: Yes (Hospitalization)
  Sender: FDA-Public Use
  Company Number: 2007RR-05274

PATIENT
  Sex: Female

DRUGS (4)
  1. METFORMIN HCL [Suspect]
     Indication: DIABETES MELLITUS NON-INSULIN-DEPENDENT
     Dosage: 3 G, QD, UNK
  2. LISINOPRIL [Concomitant]
     Indication: HYPERTENSION
     Dosage: 20 MG, QD, UNK
  3. GLIMEPIRIDE [Concomitant]
  4. HYDROCHLOROTHIAZIDE [Concomitant]

REACTIONS (10)
  - ABDOMINAL PAIN [None]
  - DIALYSIS [None]
  - DRUG EFFECT DECREASED [None]
  - HAEMATEMESIS [None]
  - HAEMODIALYSIS [None]
  - HYPERVENTILATION [None]
  - HYPOTENSION [None]
  - LACTIC ACIDOSIS [None]
  - RECTAL HAEMORRHAGE [None]
  - RENAL FAILURE [None]
